FAERS Safety Report 6544394-X (Version None)
Quarter: 2010Q1

REPORT INFORMATION
  Report Type: 
  Country: None (occurrence: None)
  Receive Date: 20100121
  Receipt Date: 20100118
  Transmission Date: 20100710
  Serious: Yes (Disabling, Other)
  Sender: FDA-Public Use
  Company Number: US-BIOGENIDEC-2010BI001453

PATIENT
  Age: 52 Year
  Sex: Male
  Weight: 104 kg

DRUGS (4)
  1. TYSABRI [Suspect]
     Indication: MULTIPLE SCLEROSIS
     Route: 042
     Dates: start: 20080909
  2. LYRICA [Concomitant]
     Route: 048
  3. LISINOPRIL [Concomitant]
     Route: 048
  4. REMERON [Concomitant]
     Route: 048

REACTIONS (1)
  - CONVULSION [None]
